FAERS Safety Report 24699805 (Version 1)
Quarter: 2024Q4

REPORT INFORMATION
  Report Type: Spontaneous
  Country: US (occurrence: US)
  Receive Date: 20241205
  Receipt Date: 20241205
  Transmission Date: 20250114
  Serious: No
  Sender: AMGEN
  Company Number: US-AMGEN-USASP2024237680

PATIENT
  Age: 66 Year
  Sex: Female

DRUGS (2)
  1. TEPEZZA [Suspect]
     Active Substance: TEPROTUMUMAB-TRBW
     Indication: Product used for unknown indication
     Dosage: UNK UNK, Q3WK, (FIRST INFUSION) (WEIGHT BASED DOSING)
     Route: 040
     Dates: start: 202410
  2. TEPEZZA [Suspect]
     Active Substance: TEPROTUMUMAB-TRBW
     Dosage: UNK UNK, Q3WK, (SIX INFUSION)
     Route: 040
     Dates: start: 2024

REACTIONS (2)
  - Chest pain [Unknown]
  - Asthenia [Unknown]
